FAERS Safety Report 7539070-0 (Version None)
Quarter: 2011Q2

REPORT INFORMATION
  Report Type: 
  Country: None (occurrence: None)
  Receive Date: 20110610
  Receipt Date: 20021126
  Transmission Date: 20111010
  Serious: Yes (Death, Hospitalization)
  Sender: FDA-Public Use
  Company Number: PHFR2002GB03681

PATIENT
  Sex: Female

DRUGS (4)
  1. BECOTIDE [Concomitant]
  2. CLOZAPINE [Suspect]
     Indication: SCHIZOPHRENIA
     Route: 048
     Dates: start: 19991123
  3. VALPROATE SODIUM [Concomitant]
     Route: 065
  4. GLICLAZIDE [Concomitant]
     Route: 065

REACTIONS (5)
  - MULTI-ORGAN FAILURE [None]
  - SIGMOIDOSCOPY [None]
  - LARGE INTESTINAL OBSTRUCTION [None]
  - RENAL IMPAIRMENT [None]
  - PERITONITIS [None]
